FAERS Safety Report 8491147-1 (Version None)
Quarter: 2012Q2

REPORT INFORMATION
  Report Type: 
  Country: None (occurrence: None)
  Receive Date: 20120402
  Receipt Date: 20120102
  Transmission Date: 20120825
  Serious: Yes (Other)
  Sender: FDA-Public Use
  Company Number: 2012P1000009

PATIENT
  Sex: Male

DRUGS (1)
  1. LOSARTAN POTASSIUM [Suspect]
     Indication: HYPERTENSION
     Dosage: 100 MG;QD;PO
     Route: 048
     Dates: start: 20120101

REACTIONS (4)
  - THROAT IRRITATION [None]
  - OROPHARYNGEAL PAIN [None]
  - THROAT TIGHTNESS [None]
  - HYPERSENSITIVITY [None]
